FAERS Safety Report 8213528-3 (Version None)
Quarter: 2012Q1

REPORT INFORMATION
  Report Type: 
  Country: None (occurrence: None)
  Receive Date: 20120315
  Receipt Date: 20120305
  Transmission Date: 20120608
  Serious: Yes (Hospitalization)
  Sender: FDA-Public Use
  Company Number: US-RB-038004-12

PATIENT
  Sex: Female

DRUGS (1)
  1. SUBUTEX [Suspect]
     Indication: DRUG DEPENDENCE
     Route: 060
     Dates: start: 20110701, end: 20120103

REACTIONS (3)
  - PREMATURE DELIVERY [None]
  - PREMATURE RUPTURE OF MEMBRANES [None]
  - MATERNAL EXPOSURE DURING PREGNANCY [None]
